FAERS Safety Report 6758824-1 (Version None)
Quarter: 2010Q2

REPORT INFORMATION
  Report Type: 
  Country: None (occurrence: None)
  Receive Date: 20100607
  Receipt Date: 20100528
  Transmission Date: 20101027
  Serious: Yes (Hospitalization)
  Sender: FDA-Public Use
  Company Number: GXKR2010CA06008

PATIENT
  Age: 23 Year
  Sex: Female

DRUGS (1)
  1. MINOCYCLINE HCL [Suspect]
     Indication: ACNE
     Dosage: 100 MG, UNK
     Route: 065
     Dates: start: 20061101, end: 20070501

REACTIONS (7)
  - ARTHRALGIA [None]
  - DERMATOMYOSITIS [None]
  - ERYTHEMA NODOSUM [None]
  - FATIGUE [None]
  - MUSCULAR WEAKNESS [None]
  - MYALGIA [None]
  - SKIN PLAQUE [None]
